FAERS Safety Report 18974912 (Version 1)
Quarter: 2021Q1

REPORT INFORMATION
  Report Type: Report from Study
  Country: ZA (occurrence: ZA)
  Receive Date: 20210305
  Receipt Date: 20210305
  Transmission Date: 20210420
  Serious: Yes (Other)
  Sender: FDA-Public Use
  Company Number: NVSC2021ZA046298

PATIENT
  Sex: Male

DRUGS (2)
  1. ULTIBRO BREEZHALER [Suspect]
     Active Substance: GLYCOPYRRONIUM\INDACATEROL
     Indication: CARDIAC FAILURE
     Dosage: UNK
     Route: 048
  2. TRAMAHEXAL [Suspect]
     Active Substance: TRAMADOL HYDROCHLORIDE
     Indication: CARDIAC FAILURE
     Route: 048

REACTIONS (5)
  - Product use in unapproved indication [Unknown]
  - Cardiac failure chronic [Unknown]
  - Fatigue [Unknown]
  - Glomerular filtration rate abnormal [Unknown]
  - Dyspnoea exertional [Unknown]
